FAERS Safety Report 9607930 (Version 3)
Quarter: 2015Q4

REPORT INFORMATION
  Report Type: Spontaneous
  Country: US (occurrence: US)
  Receive Date: 20131009
  Receipt Date: 20151103
  Transmission Date: 20160305
  Serious: No
  Sender: FDA-Public Use
  Company Number: US-009507513-1310USA002937

PATIENT
  Sex: Male

DRUGS (9)
  1. COPEGUS [Suspect]
     Active Substance: RIBAVIRIN
     Indication: HEPATITIS C
     Dosage: 400 MG, Q12H
     Route: 048
     Dates: start: 20130801
  2. COPEGUS [Suspect]
     Active Substance: RIBAVIRIN
     Dosage: 200 MG, Q12H
     Route: 048
  3. COPEGUS [Suspect]
     Active Substance: RIBAVIRIN
     Dosage: 400 MG AM AND 200 MG PM
     Route: 048
  4. PEGASYS [Suspect]
     Active Substance: PEGINTERFERON ALFA-2A
     Indication: HEPATITIS C
     Dosage: PROCLICK, 180 MICROGRAM, WEEKLY
     Route: 058
     Dates: start: 20130801
  5. VICTRELIS [Suspect]
     Active Substance: BOCEPREVIR
     Indication: HEPATITIS C
     Route: 065
  6. NEURONTIN [Concomitant]
     Active Substance: GABAPENTIN
  7. PRINIVIL [Concomitant]
     Active Substance: LISINOPRIL
     Indication: HYPERTENSION
     Dosage: 10 MG, UNK
     Route: 048
  8. WELCHOL [Concomitant]
     Active Substance: COLESEVELAM HYDROCHLORIDE
  9. TRAMADOL HYDROCHLORIDE. [Concomitant]
     Active Substance: TRAMADOL HYDROCHLORIDE

REACTIONS (4)
  - Pruritus [Not Recovered/Not Resolved]
  - Erythema [Unknown]
  - Full blood count decreased [Not Recovered/Not Resolved]
  - Rash [Unknown]
